FAERS Safety Report 15318371 (Version 3)
Quarter: 2019Q1

REPORT INFORMATION
  Report Type: Report from Study
  Country: US (occurrence: US)
  Receive Date: 20180825
  Receipt Date: 20190127
  Transmission Date: 20190417
  Serious: Yes (Other)
  Sender: FDA-Public Use
  Company Number: PHHY2018US008423

PATIENT
  Age: 31 Year
  Sex: Female

DRUGS (1)
  1. GILENYA [Suspect]
     Active Substance: FINGOLIMOD HYDROCHLORIDE
     Indication: MULTIPLE SCLEROSIS
     Dosage: UNK, QD
     Route: 048

REACTIONS (15)
  - Lymphopenia [Unknown]
  - Fatigue [Unknown]
  - Hypoaesthesia [Unknown]
  - Tachycardia [Unknown]
  - Dysarthria [Unknown]
  - Migraine [Unknown]
  - Balance disorder [Unknown]
  - Insomnia [Unknown]
  - Back pain [Unknown]
  - Fall [Unknown]
  - Muscle spasms [Unknown]
  - Snoring [Unknown]
  - Nephrolithiasis [Unknown]
  - Nausea [Recovered/Resolved]
  - Tremor [Unknown]

NARRATIVE: CASE EVENT DATE: 20171211
